FAERS Safety Report 10085696 (Version 1)
Quarter: 2014Q2

REPORT INFORMATION
  Report Type: Spontaneous
  Country: US (occurrence: None)
  Receive Date: 20140416
  Receipt Date: 20140416
  Transmission Date: 20141212
  Serious: Yes (Other)
  Sender: FDA-Public Use
  Company Number: 201311035

PATIENT
  Age: 65 Year
  Sex: Male
  Weight: 229 kg

DRUGS (1)
  1. TESTOPEL [Suspect]
     Indication: HYPOGONADISM
     Dosage: PELLETS
     Route: 058
     Dates: start: 20131022

REACTIONS (3)
  - Injection site haemorrhage [None]
  - Injection site abscess [None]
  - Wound [None]
